FAERS Safety Report 7241652-0 (Version None)
Quarter: 2011Q1

REPORT INFORMATION
  Report Type: 
  Country: None (occurrence: None)
  Receive Date: 20110124
  Receipt Date: 20110112
  Transmission Date: 20110831
  Serious: Yes (Other)
  Sender: FDA-Public Use
  Company Number: PHHO2011FR00975

PATIENT
  Sex: Male
  Weight: 86 kg

DRUGS (9)
  1. AFINITOR [Suspect]
     Indication: HEPATIC NEOPLASM MALIGNANT
     Dosage: UNK
     Route: 048
     Dates: start: 20101209, end: 20110112
  2. MOPRAL [Concomitant]
     Indication: GASTROOESOPHAGEAL REFLUX DISEASE
  3. PEVARYL [Concomitant]
  4. MODAMIDE [Concomitant]
     Indication: HYPERTENSION
  5. LOCACID [Concomitant]
     Indication: RASH ERYTHEMATOUS
  6. TOPALGIC [Concomitant]
     Indication: BONE PAIN
  7. LERCAN [Concomitant]
     Indication: HYPERTENSION
  8. CORGARD [Concomitant]
  9. VOLTAREN [Concomitant]

REACTIONS (3)
  - NEUTROPENIA [None]
  - HYPERSPLENISM [None]
  - CONCOMITANT DISEASE PROGRESSION [None]
